FAERS Safety Report 9194283 (Version 2)
Quarter: 2013Q4

REPORT INFORMATION
  Report Type: Spontaneous
  Country: FR (occurrence: FR)
  Receive Date: 20130327
  Receipt Date: 20131009
  Transmission Date: 20140711
  Serious: Yes (Hospitalization, Other)
  Sender: FDA-Public Use
  Company Number: FR-PFIZER INC-2013092559

PATIENT
  Age: 61 Year
  Sex: Female

DRUGS (16)
  1. REVATIO [Suspect]
     Dosage: 3 DF A DAY
     Route: 048
  2. ZOLPIDEM TARTRATE [Suspect]
     Dosage: 2 DF, 1X/DAY
     Route: 048
  3. TRAMADOL HYDROCHLORIDE AUROBINDO [Suspect]
     Dosage: 1 DF, 1X/DAY
     Route: 048
  4. FLOLAN [Suspect]
     Dosage: UNK
     Route: 042
     Dates: start: 20090916
  5. INEXIUM [Suspect]
     Dosage: 1 DF, 1X/DAY
     Route: 048
  6. ATARAX [Suspect]
     Dosage: 1 DF, 1X/DAY
     Route: 048
  7. VERAPAMIL HYDROCHLORIDE [Suspect]
     Dosage: 40 MG, 3 TABLETS A DAY
     Dates: end: 20110411
  8. VERAPAMIL HYDROCHLORIDE [Suspect]
     Dosage: 40 MG, ONE TABLET A DAY
     Route: 048
  9. COUMADINE [Suspect]
     Dosage: ACCORDING TO INR
     Route: 048
     Dates: end: 20110411
  10. COUMADINE [Suspect]
     Dosage: ACCORDING TO INR
     Route: 048
     Dates: start: 20110413
  11. LASILIX [Suspect]
     Dosage: 2DF A DAY
     Route: 048
  12. TRACLEER [Suspect]
     Dosage: 2 DF A DAY
     Route: 048
  13. MIANSERIN HYDROCHLORIDE [Suspect]
     Dosage: 1 DF, 1X/DAY
     Route: 048
  14. LORAZEPAM [Suspect]
     Dosage: 4 MG A DAY
     Route: 048
  15. TERCIAN [Suspect]
     Dosage: 15 DROPS A DAY
     Route: 048
  16. LEVOTHYROX [Suspect]
     Dosage: 50 UG, 1X/DAY
     Route: 048

REACTIONS (3)
  - Thrombocytopenia [Recovered/Resolved]
  - Haemorrhage [Recovering/Resolving]
  - Epistaxis [Recovering/Resolving]
